FAERS Safety Report 6007427-5 (Version None)
Quarter: 2008Q4

REPORT INFORMATION
  Report Type: 
  Country: None (occurrence: None)
  Receive Date: 20081217
  Receipt Date: 20080416
  Transmission Date: 20090506
  Serious: No
  Sender: FDA-Public Use
  Company Number: US-ASTRAZENECA-2008UW07809

PATIENT
  Age: 68 Year
  Sex: Male
  Weight: 65.8 kg

DRUGS (3)
  1. CRESTOR [Suspect]
     Indication: BLOOD CHOLESTEROL INCREASED
     Route: 048
     Dates: start: 20050101, end: 20070101
  2. CRESTOR [Suspect]
     Route: 048
     Dates: start: 20050101, end: 20070301
  3. ADVIL LIQUI-GELS [Concomitant]

REACTIONS (1)
  - POSTNASAL DRIP [None]
